FAERS Safety Report 25333662 (Version 1)
Quarter: 2025Q2

REPORT INFORMATION
  Report Type: Spontaneous
  Country: US (occurrence: US)
  Receive Date: 20250520
  Receipt Date: 20250520
  Transmission Date: 20250717
  Serious: No
  Sender: Steriscience PTE
  Company Number: US-STERISCIENCE B.V.-2025-ST-000696

PATIENT
  Age: 70 Year
  Sex: Female

DRUGS (2)
  1. MIDAZOLAM [Suspect]
     Active Substance: MIDAZOLAM
     Indication: Myoclonus
     Route: 065
  2. THIAMINE [Suspect]
     Active Substance: THIAMINE
     Indication: Myoclonus
     Route: 065

REACTIONS (1)
  - Drug effective for unapproved indication [Unknown]
